FAERS Safety Report 7353798-7 (Version None)
Quarter: 2011Q1

REPORT INFORMATION
  Report Type: 
  Country: None (occurrence: None)
  Receive Date: 20110315
  Receipt Date: 20110304
  Transmission Date: 20110831
  Serious: Yes (Hospitalization, Other)
  Sender: FDA-Public Use
  Company Number: FR-BAXTER-2010BH030408

PATIENT
  Age: 56 Year
  Sex: Female
  Weight: 70 kg

DRUGS (15)
  1. CARDIOXANE [Concomitant]
     Route: 042
     Dates: start: 20110103, end: 20110103
  2. EMEND [Concomitant]
     Indication: PROPHYLAXIS OF NAUSEA AND VOMITING
     Route: 048
     Dates: start: 20101213, end: 20101213
  3. EMEND [Concomitant]
     Route: 048
     Dates: start: 20101214, end: 20101215
  4. DEXAMETHASONE [Concomitant]
     Indication: PREMEDICATION
     Route: 042
     Dates: start: 20101102, end: 20101215
  5. CARDIOXANE [Concomitant]
     Indication: CARDIOVASCULAR EVENT PROPHYLAXIS
     Route: 042
     Dates: start: 20101122, end: 20101215
  6. ONDANSETRON [Concomitant]
     Indication: PREMEDICATION
     Route: 042
     Dates: start: 20101102, end: 20110103
  7. LENOGRASTIM [Concomitant]
     Indication: PRODUCT USED FOR UNKNOWN INDICATION
     Route: 058
     Dates: start: 20101102, end: 20110103
  8. DOXORUBICIN HCL [Suspect]
     Route: 042
     Dates: start: 20110103, end: 20110103
  9. DEXAMETHASONE [Concomitant]
     Route: 042
     Dates: start: 20110103, end: 20110103
  10. HOLOXAN BAXTER [Suspect]
     Indication: CHEMOTHERAPY
     Route: 042
     Dates: start: 20101102, end: 20101215
  11. DOXORUBICIN HCL [Suspect]
     Indication: CHEMOTHERAPY
     Route: 042
     Dates: start: 20101102, end: 20101213
  12. EPOGEN [Concomitant]
     Indication: PRODUCT USED FOR UNKNOWN INDICATION
     Route: 065
     Dates: start: 20101213
  13. LODOZ [Concomitant]
     Indication: HYPERTENSION
     Route: 048
     Dates: start: 20101102
  14. EMEND [Concomitant]
     Route: 048
     Dates: start: 20110103, end: 20110103
  15. MESNA [Suspect]
     Indication: CHEMOTHERAPY
     Route: 042
     Dates: start: 20101102, end: 20101215

REACTIONS (7)
  - FEBRILE NEUTROPENIA [None]
  - ENCEPHALOPATHY [None]
  - HEADACHE [None]
  - WEIGHT DECREASED [None]
  - VOMITING [None]
  - ASTHENIA [None]
  - NAUSEA [None]
